FAERS Safety Report 21986534 (Version 1)
Quarter: 2023Q1

REPORT INFORMATION
  Report Type: Spontaneous
  Country: US (occurrence: None)
  Receive Date: 20230210
  Receipt Date: 20230210
  Transmission Date: 20230417
  Serious: Yes (Hospitalization)
  Sender: FDA-Public Use
  Company Number: None

PATIENT
  Age: 75 Year
  Sex: Female
  Weight: 78.93 kg

DRUGS (6)
  1. CAPECITABINE [Suspect]
     Active Substance: CAPECITABINE
     Indication: Pancreatic carcinoma
     Dosage: 150MG BID PQ- 14D ON, 7D OFF
     Route: 048
  2. CAPECITABINE [Suspect]
     Active Substance: CAPECITABINE
     Indication: Pancreatic carcinoma
     Dosage: ?500MG X 2 TABS BID  PO-14D ON, 7D OFF
     Route: 048
  3. POTASSIUM CHLORIDE CAPSULE [Concomitant]
  4. PROCHLORPERAZINE ORAL TAB [Concomitant]
  5. ROPINIROLE HCL TAB [Concomitant]
  6. TYLENOL [Concomitant]
     Active Substance: ACETAMINOPHEN

REACTIONS (1)
  - Intensive care [None]
